FAERS Safety Report 7475800-4 (Version None)
Quarter: 2011Q2

REPORT INFORMATION
  Report Type: 
  Country: None (occurrence: None)
  Receive Date: 20110512
  Receipt Date: 20110504
  Transmission Date: 20111010
  Serious: Yes (Life-Threatening)
  Sender: FDA-Public Use
  Company Number: AU-PURDUE-USA-2011-0067638

PATIENT
  Sex: Female
  Weight: 70 kg

DRUGS (8)
  1. CEFAZOLIN [Suspect]
     Indication: PRODUCT USED FOR UNKNOWN INDICATION
  2. PROPOFOL [Suspect]
     Indication: PRODUCT USED FOR UNKNOWN INDICATION
  3. OXYCODONE HCL [Suspect]
     Indication: PRODUCT USED FOR UNKNOWN INDICATION
     Dosage: 10 MG, SINGLE
  4. DEXAMETHASONE [Suspect]
     Indication: PRODUCT USED FOR UNKNOWN INDICATION
  5. METRONIDAZOLE [Suspect]
     Indication: PRODUCT USED FOR UNKNOWN INDICATION
  6. PARECOXIB SODIUM [Suspect]
     Indication: PRODUCT USED FOR UNKNOWN INDICATION
  7. METARAMINOL BITARTRATE [Suspect]
     Indication: PRODUCT USED FOR UNKNOWN INDICATION
  8. ONDANSETRON [Suspect]
     Indication: PRODUCT USED FOR UNKNOWN INDICATION

REACTIONS (3)
  - ARTERIOSPASM CORONARY [None]
  - ANAPHYLACTIC REACTION [None]
  - STRESS CARDIOMYOPATHY [None]
